FAERS Safety Report 9278026 (Version 1)
Quarter: 2013Q2

REPORT INFORMATION
  Report Type: Spontaneous
  Country: US (occurrence: US)
  Receive Date: 20130508
  Receipt Date: 20130508
  Transmission Date: 20140414
  Serious: Yes (Other)
  Sender: FDA-Public Use
  Company Number: US-PFIZER INC-2013140984

PATIENT
  Age: 64 Year
  Sex: Female
  Weight: 68.03 kg

DRUGS (7)
  1. CELEBREX [Suspect]
     Indication: RHEUMATOID ARTHRITIS
     Dosage: UNK, 2X/DAY
     Dates: end: 2010
  2. CELEBREX [Suspect]
     Indication: OSTEOPOROSIS
  3. METHOTREXATE [Concomitant]
     Indication: RHEUMATOID ARTHRITIS
     Dosage: 2.5 MG, 8 TABLETS, WEEKLY
  4. PROPAFENONE [Concomitant]
     Indication: CARDIAC DISORDER
     Dosage: UNK
  5. LANSOPRAZOLE [Concomitant]
     Indication: DYSPEPSIA
     Dosage: UNK
  6. LANSOPRAZOLE [Concomitant]
     Indication: DYSPEPSIA
  7. FOLIC ACID [Concomitant]
     Dosage: 1 MG, 1X/DAY

REACTIONS (2)
  - Renal impairment [Recovering/Resolving]
  - Urinary incontinence [Unknown]
